FAERS Safety Report 5160152-5 (Version None)
Quarter: 2006Q4

REPORT INFORMATION
  Report Type: 
  Country: None (occurrence: None)
  Receive Date: 20061129
  Receipt Date: 20060907
  Transmission Date: 20070319
  Serious: Yes (Death)
  Sender: FDA-Public Use
  Company Number: JP-MERCK-0610USA01441

PATIENT
  Age: 46 Year
  Sex: Female

DRUGS (5)
  1. PEPCID RPD [Suspect]
     Indication: PROPHYLAXIS
     Route: 048
  2. MICAFUNGIN SODIUM [Suspect]
     Indication: FUNGAL INFECTION
     Route: 051
     Dates: start: 20060602, end: 20060606
  3. BACTRIM [Concomitant]
     Route: 048
     Dates: start: 20060506
  4. BROACT [Concomitant]
     Route: 051
     Dates: start: 20060602, end: 20060606
  5. SOLU-CORTEF [Concomitant]
     Route: 051
     Dates: start: 20060602, end: 20060603

REACTIONS (6)
  - ACUTE MYELOID LEUKAEMIA [None]
  - ALANINE AMINOTRANSFERASE DECREASED [None]
  - ASPARTATE AMINOTRANSFERASE INCREASED [None]
  - BLOOD ALKALINE PHOSPHATASE INCREASED [None]
  - BLOOD LACTATE DEHYDROGENASE INCREASED [None]
  - LIVER DISORDER [None]
